FAERS Safety Report 7888738-5 (Version None)
Quarter: 2011Q4

REPORT INFORMATION
  Report Type: 
  Country: None (occurrence: None)
  Receive Date: 20111103
  Receipt Date: 20111028
  Transmission Date: 20120403
  Serious: Yes (Other)
  Sender: FDA-Public Use
  Company Number: CA-AMGEN-CANSP2011027976

PATIENT
  Age: 65 Year
  Sex: Female
  Weight: 71.5 kg

DRUGS (5)
  1. NEUROTIN                           /00949202/ [Concomitant]
     Dosage: 400 MG, UNK
  2. OXYCONTIN [Concomitant]
     Dosage: 20 MG, UNK
  3. PROLIA [Suspect]
     Indication: OSTEOPOROSIS
     Dosage: 60 MG, Q6MO
     Route: 058
     Dates: start: 20110516
  4. ATACAND [Concomitant]
     Dosage: 8 MG, BID
  5. CRESTOR [Concomitant]
     Dosage: 10 MG, QD

REACTIONS (9)
  - ARTHRALGIA [None]
  - PAIN [None]
  - DECREASED ACTIVITY [None]
  - PAIN IN EXTREMITY [None]
  - BURNING SENSATION [None]
  - OEDEMA PERIPHERAL [None]
  - BLOOD DISORDER [None]
  - ABASIA [None]
  - URINE FLOW DECREASED [None]
